FAERS Safety Report 5473700-2 (Version None)
Quarter: 2007Q4

REPORT INFORMATION
  Report Type: 
  Country: None (occurrence: None)
  Receive Date: 20071001
  Receipt Date: 20060320
  Transmission Date: 20080405
  Serious: Yes (Hospitalization)
  Sender: FDA-Public Use
  Company Number: US-PFIZER INC-2006008551

PATIENT
  Sex: Female
  Weight: 61.2 kg

DRUGS (3)
  1. DILANTIN [Suspect]
     Indication: CONVULSION
     Route: 065
     Dates: start: 20040701, end: 20050504
  2. DECADRON [Suspect]
     Dates: start: 20040701, end: 20050504
  3. ALL OTHER THERAPEUTIC PRODUCTS [Suspect]

REACTIONS (9)
  - ALLERGY TO CHEMICALS [None]
  - ANXIETY [None]
  - CONVULSION [None]
  - DIZZINESS [None]
  - FUNGAL INFECTION [None]
  - HEADACHE [None]
  - MULTIPLE CHEMICAL SENSITIVITY [None]
  - SOMNOLENCE [None]
  - TREMOR [None]
